FAERS Safety Report 7711629-7 (Version None)
Quarter: 2011Q3

REPORT INFORMATION
  Report Type: 
  Country: None (occurrence: None)
  Receive Date: 20110826
  Receipt Date: 20110722
  Transmission Date: 20111222
  Serious: No
  Sender: FDA-Public Use
  Company Number: US-BRISTOL-MYERS SQUIBB COMPANY-15812894

PATIENT
  Age: 47 Year
  Sex: Female

DRUGS (5)
  1. ONGLYZA [Suspect]
     Indication: DIABETES MELLITUS
     Route: 048
     Dates: start: 20110429, end: 20110531
  2. RYTHMOL [Concomitant]
  3. CYTOMEL [Concomitant]
  4. SYNTHROID [Concomitant]
  5. MICARDIS [Concomitant]

REACTIONS (6)
  - FEELING ABNORMAL [None]
  - DIZZINESS [None]
  - NAUSEA [None]
  - FATIGUE [None]
  - IRRITABILITY [None]
  - DEPRESSION [None]
